FAERS Safety Report 9147517 (Version 1)
Quarter: 2013Q1

REPORT INFORMATION
  Report Type: Spontaneous
  Country: IT (occurrence: IT)
  Receive Date: 20130307
  Receipt Date: 20130307
  Transmission Date: 20140127
  Serious: Yes (Other)
  Sender: FDA-Public Use
  Company Number: IT-PFIZER INC-2013073873

PATIENT
  Age: 69 Year
  Sex: Male

DRUGS (3)
  1. VENLAFAXINE HYDROCHLORIDE [Suspect]
     Dosage: 150 MG, DAILY
     Route: 048
  2. OLANZAPINE [Suspect]
     Dosage: 20 MG DAILY
     Route: 048
  3. OLANZAPINE [Suspect]
     Dosage: 10 MG, DAILY
     Route: 048

REACTIONS (5)
  - Persecutory delusion [Recovering/Resolving]
  - Hallucination, visual [Recovering/Resolving]
  - Cognitive disorder [Recovering/Resolving]
  - Disorientation [Recovering/Resolving]
  - Confusional state [Recovering/Resolving]
